FAERS Safety Report 9122713 (Version 5)
Quarter: 2013Q2

REPORT INFORMATION
  Report Type: Spontaneous
  Country: JP (occurrence: JP)
  Receive Date: 20130227
  Receipt Date: 20130424
  Transmission Date: 20140414
  Serious: Yes (Hospitalization, Other)
  Sender: FDA-Public Use
  Company Number: JP-PFIZER INC-2013065473

PATIENT
  Age: 19 Year
  Sex: Female
  Weight: 47 kg

DRUGS (10)
  1. MINOMYCIN [Suspect]
     Indication: PNEUMONIA
     Dosage: 200 MG, DAILY
     Route: 065
     Dates: start: 2008
  2. CEFEPIME HCL [Suspect]
     Indication: PNEUMONIA
     Dosage: 2 G, DAILY
     Route: 050
     Dates: start: 2008
  3. IBUPROFEN [Suspect]
     Indication: HEADACHE
     Dosage: UNK
     Dates: start: 200802
  4. PAVULON [Suspect]
     Dosage: NK
  5. CALONAL [Suspect]
     Indication: NASOPHARYNGITIS
     Dosage: UNK
     Route: 048
     Dates: start: 200802
  6. CARBENIN [Suspect]
     Indication: PNEUMONIA
     Dosage: 1.5 MG, DAILY
     Dates: start: 2008, end: 2008
  7. ARBEKACIN [Suspect]
     Indication: PNEUMONIA
     Dosage: 300 MG, DAILY
     Route: 065
     Dates: start: 2008, end: 2008
  8. METHYLPREDNISOLONE [Concomitant]
     Indication: PRODUCT USED FOR UNKNOWN INDICATION
     Dosage: 1 G, 1X/DAY
     Dates: start: 2008, end: 2008
  9. PREDNISONE [Concomitant]
     Indication: PRODUCT USED FOR UNKNOWN INDICATION
     Dosage: 1 MG/KG, UNK
     Dates: start: 2008, end: 2008
  10. BETAMETHASONE [Concomitant]
     Indication: PRODUCT USED FOR UNKNOWN INDICATION
     Dosage: UNK
     Dates: start: 2008

REACTIONS (1)
  - Vanishing bile duct syndrome [Recovered/Resolved]
